FAERS Safety Report 15004325 (Version 3)
Quarter: 2018Q3

REPORT INFORMATION
  Report Type: Spontaneous
  Country: US (occurrence: US)
  Receive Date: 20180613
  Receipt Date: 20180723
  Transmission Date: 20181010
  Serious: No
  Sender: FDA-Public Use
  Company Number: US-PFIZER INC-2018238816

PATIENT
  Age: 71 Year
  Sex: Female

DRUGS (5)
  1. FENTANYL CITRATE. [Suspect]
     Active Substance: FENTANYL CITRATE
     Indication: SEDATION
     Dosage: 50?100 MCG EVERY HOUR AS NEEDED, A TOTAL OF 300MCG
     Route: 042
  2. FENTANYL CITRATE. [Suspect]
     Active Substance: FENTANYL CITRATE
     Indication: PAIN
     Dosage: 50?100 MCG EVERY HOUR AS NEEDED, A TOTAL OF 300MCG
     Route: 042
     Dates: start: 20180607, end: 20180607
  3. MIDAZOLAM [Suspect]
     Active Substance: MIDAZOLAM HYDROCHLORIDE
     Indication: PAIN
     Dosage: 2 MG, AS NEEDED [2MG EVERY 15 MINUTES AS NEEDED (A TOTAL OF 8MG WAS ADMINISTERED)]
     Route: 042
     Dates: end: 20180608
  4. FENTANYL CITRATE. [Suspect]
     Active Substance: FENTANYL CITRATE
     Dosage: 50?100 MCG EVERY HOUR AS NEEDED, A TOTAL OF 300MCG
     Route: 042
     Dates: end: 20180608
  5. MIDAZOLAM [Suspect]
     Active Substance: MIDAZOLAM HYDROCHLORIDE
     Indication: SEDATION
     Dosage: 2 MG, AS NEEDED [2MG EVERY 15 MINUTES AS NEEDED (A TOTAL OF 8MG WAS ADMINISTERED)]
     Route: 042
     Dates: start: 20180607, end: 20180607

REACTIONS (1)
  - Drug ineffective [Unknown]

NARRATIVE: CASE EVENT DATE: 20180607
